FAERS Safety Report 16848398 (Version 1)
Quarter: 2019Q3

REPORT INFORMATION
  Report Type: Spontaneous
  Country: US (occurrence: US)
  Receive Date: 20190925
  Receipt Date: 20190925
  Transmission Date: 20191005
  Serious: No
  Sender: FDA-Public Use
  Company Number: US-AMGEN-USASP2019156101

PATIENT
  Age: 64 Year
  Sex: Female

DRUGS (4)
  1. NEUPOGEN [Suspect]
     Active Substance: FILGRASTIM
     Indication: WHITE BLOOD CELL COUNT ABNORMAL
     Route: 065
  2. PROLIA [Suspect]
     Active Substance: DENOSUMAB
     Indication: BONE LOSS
     Dosage: UNK
     Route: 065
     Dates: start: 2015
  3. PROLIA [Suspect]
     Active Substance: DENOSUMAB
     Indication: OSTEOPOROSIS
  4. ANASTOLE [ANASTROZOLE] [Concomitant]
     Dosage: UNK
     Dates: start: 2015

REACTIONS (5)
  - Dental caries [Unknown]
  - Tooth hypoplasia [Unknown]
  - Tooth disorder [Unknown]
  - Alopecia [Unknown]
  - Dental pulp disorder [Unknown]

NARRATIVE: CASE EVENT DATE: 2018
